FAERS Safety Report 11518792 (Version 1)
Quarter: 2015Q3

REPORT INFORMATION
  Report Type: Spontaneous
  Country: US (occurrence: US)
  Receive Date: 20150917
  Receipt Date: 20150917
  Transmission Date: 20151125
  Serious: Yes (Hospitalization)
  Sender: FDA-Public Use
  Company Number: US-MYLANLABS-2015M1031041

PATIENT

DRUGS (1)
  1. WARFARIN [Suspect]
     Active Substance: WARFARIN
     Indication: PRODUCT USED FOR UNKNOWN INDICATION
     Dosage: 168MG OVER 4 DAYS
     Route: 048

REACTIONS (6)
  - Overdose [Unknown]
  - Coagulopathy [Unknown]
  - Suicide attempt [Unknown]
  - Epistaxis [Unknown]
  - Ecchymosis [Unknown]
  - Retroperitoneal haematoma [Unknown]
